FAERS Safety Report 4974688-0 (Version None)
Quarter: 2006Q2

REPORT INFORMATION
  Report Type: 
  Country: None (occurrence: None)
  Receive Date: 20060417
  Receipt Date: 20050919
  Transmission Date: 20061013
  Serious: Yes (Death, Other)
  Sender: FDA-Public Use
  Company Number: US-MERCK-0509USA02968

PATIENT
  Age: 69 Year
  Sex: Female

DRUGS (1)
  1. VIOXX [Suspect]
     Route: 048

REACTIONS (5)
  - CARDIAC ARREST [None]
  - CEREBROVASCULAR ACCIDENT [None]
  - HYPOXIC ENCEPHALOPATHY [None]
  - INJURY [None]
  - MYOCARDIAL INFARCTION [None]
